FAERS Safety Report 8879041 (Version 1)
Quarter: 2012Q4

REPORT INFORMATION
  Report Type: Spontaneous
  Country: US (occurrence: None)
  Receive Date: 20121031
  Receipt Date: 20121031
  Transmission Date: 20130627
  Serious: No
  Sender: FDA-Public Use
  Company Number: None

PATIENT
  Age: 7 Year
  Sex: Male
  Weight: 37.65 kg

DRUGS (1)
  1. MONTELUKAST [Suspect]

REACTIONS (6)
  - Sleep disorder [None]
  - Fear [None]
  - Screaming [None]
  - Sleep terror [None]
  - Abdominal pain [None]
  - Product substitution issue [None]
